FAERS Safety Report 4292651-2 (Version None)
Quarter: 2004Q1

REPORT INFORMATION
  Report Type: 
  Country: None (occurrence: None)
  Receive Date: 20040211
  Receipt Date: 20040202
  Transmission Date: 20041129
  Serious: Yes (Hospitalization)
  Sender: FDA-Public Use
  Company Number: PHFR2004GB00874

PATIENT
  Age: 78 Year
  Sex: Male
  Weight: 63 kg

DRUGS (8)
  1. ZOMETA [Suspect]
     Indication: PROSTATE CANCER
     Dosage: EVERY 4 WEEKS
     Route: 042
     Dates: start: 20020901, end: 20030601
  2. ASPIRIN [Concomitant]
     Dosage: 75MG/DAY
     Route: 048
  3. ZOPLICONE [Concomitant]
     Dosage: 3.75MG/DAY
     Route: 048
  4. PREDNISOLONE [Concomitant]
     Indication: PROSTATE CANCER
     Dosage: 10MG/DAY
  5. CALCICHEW [Concomitant]
     Route: 048
  6. STILBOESTROL [Concomitant]
     Indication: PROSTATE CANCER
     Dosage: 1MG/DAY
     Route: 048
  7. AMIODARONE HCL [Concomitant]
     Dosage: 200MG/DAY
     Route: 048
  8. PARACETAMOL [Concomitant]
     Route: 048

REACTIONS (9)
  - ASTHENIA [None]
  - BLOOD CREATININE INCREASED [None]
  - BLOOD UREA INCREASED [None]
  - DYSPNOEA [None]
  - FIBRIN D DIMER INCREASED [None]
  - LETHARGY [None]
  - LOWER RESPIRATORY TRACT INFLAMMATION [None]
  - OEDEMA PERIPHERAL [None]
  - RENAL FAILURE ACUTE [None]
